FAERS Safety Report 11747809 (Version 2)
Quarter: 2015Q4

REPORT INFORMATION
  Report Type: Spontaneous
  Country: JP (occurrence: JP)
  Receive Date: 20151117
  Receipt Date: 20151210
  Transmission Date: 20160304
  Serious: Yes (Hospitalization, Other)
  Sender: FDA-Public Use
  Company Number: JP-APOTEX-2015AP014490

PATIENT
  Age: 42 Year
  Sex: Female
  Weight: 82 kg

DRUGS (2)
  1. MIRTAZAPINE. [Suspect]
     Active Substance: MIRTAZAPINE
     Indication: DEPRESSION
     Route: 065
  2. PAXIL [Suspect]
     Active Substance: PAROXETINE HYDROCHLORIDE
     Indication: DEPRESSION
     Route: 048

REACTIONS (4)
  - Pancreatitis acute [Recovering/Resolving]
  - Hypertriglyceridaemia [Recovering/Resolving]
  - Hyperglycaemia [Recovering/Resolving]
  - Weight increased [Recovering/Resolving]
